FAERS Safety Report 24051390 (Version 1)
Quarter: 2024Q3

REPORT INFORMATION
  Report Type: Spontaneous
  Country: CN (occurrence: CN)
  Receive Date: 20240704
  Receipt Date: 20240704
  Transmission Date: 20241016
  Serious: Yes (Other)
  Sender: MERCK
  Company Number: CN-009507513-2406CHN010272

PATIENT
  Age: 74 Year
  Sex: Female
  Weight: 57 kg

DRUGS (1)
  1. INVANZ [Suspect]
     Active Substance: ERTAPENEM SODIUM
     Indication: Escherichia urinary tract infection
     Dosage: 1 G, QD
     Route: 041
     Dates: start: 20240603, end: 20240604

REACTIONS (3)
  - End stage renal disease [Unknown]
  - Headache [Recovering/Resolving]
  - Athetosis [Recovering/Resolving]

NARRATIVE: CASE EVENT DATE: 20240101
